FAERS Safety Report 12142456 (Version 1)
Quarter: 2016Q1

REPORT INFORMATION
  Report Type: Spontaneous
  Country: US (occurrence: US)
  Receive Date: 20160303
  Receipt Date: 20160303
  Transmission Date: 20160526
  Serious: No
  Sender: FDA-Public Use
  Company Number: US-ENDO PHARMACEUTICALS INC.-2015-000233

PATIENT
  Age: 43 Year
  Sex: Female

DRUGS (1)
  1. AMPICILLIN CAPSULES [Suspect]
     Active Substance: AMPICILLIN
     Indication: URINARY TRACT INFECTION BACTERIAL
     Route: 065

REACTIONS (1)
  - Drug resistance [Not Recovered/Not Resolved]
